FAERS Safety Report 6431455-9 (Version None)
Quarter: 2009Q4

REPORT INFORMATION
  Report Type: 
  Country: None (occurrence: None)
  Receive Date: 20091106
  Receipt Date: 20091105
  Transmission Date: 20100525
  Serious: Yes (Life-Threatening, Hospitalization)
  Sender: FDA-Public Use
  Company Number: GB-WYE-G04737509

PATIENT
  Sex: Female

DRUGS (15)
  1. GEMTUZUMAB OZOGAMICIN [Suspect]
     Indication: ACUTE MYELOID LEUKAEMIA
     Dosage: 8 MG, FREQUENCY UNKNOWN
     Route: 042
     Dates: start: 20091008
  2. ARA-C [Suspect]
     Indication: ACUTE MYELOID LEUKAEMIA
     Dates: start: 20091008, end: 20091011
  3. ONDANSETRON [Concomitant]
     Dates: start: 20091008, end: 20091023
  4. GENTAMICIN [Concomitant]
     Dosage: 120MG, FREQUENCY UNKNOWN
     Route: 048
     Dates: start: 20091008, end: 20091011
  5. BENDROFLUAZIDE [Concomitant]
     Dosage: 2.5MG, FREQUENCY UNKNOWN
     Route: 048
     Dates: start: 20091005, end: 20091008
  6. NIFEDIPINE [Concomitant]
     Dosage: 60MG, FREQUENCY UNKNOWN
     Dates: start: 20091006, end: 20091009
  7. LANSOPRAZOLE [Concomitant]
     Dosage: 30MG, FREQUENCY UNKNOWN
     Dates: start: 20091006
  8. FLUCONAZOLE [Concomitant]
     Dosage: 100MG, FREQUENCY UNKNOWN
     Dates: start: 20091008, end: 20091023
  9. CIPROFLOXACIN [Concomitant]
     Dates: start: 20091014, end: 20091017
  10. TAZOCIN [Concomitant]
     Dosage: 4.5 G EVERY 1 TOT
     Route: 042
     Dates: start: 20091008, end: 20091010
  11. ALLOPURINOL [Concomitant]
     Dosage: 100MG, FREQUENCY UNKNOWN
     Dates: start: 20091008, end: 20091025
  12. DAUNORUBICIN HCL [Suspect]
     Indication: ACUTE MYELOID LEUKAEMIA
     Dates: start: 20091008, end: 20091008
  13. DAUNORUBICIN HCL [Suspect]
     Dates: start: 20091014, end: 20091014
  14. DAUNORUBICIN HCL [Suspect]
     Dates: start: 20091016, end: 20091016
  15. ENALAPRIL [Concomitant]
     Dosage: 10MG, FREQUENCY UNKNOWN
     Route: 048
     Dates: start: 20091006, end: 20091009

REACTIONS (3)
  - DYSPNOEA [None]
  - PULMONARY OEDEMA [None]
  - SEPSIS [None]
